FAERS Safety Report 5140382-9 (Version None)
Quarter: 2006Q4

REPORT INFORMATION
  Report Type: 
  Country: None (occurrence: None)
  Receive Date: 20061031
  Receipt Date: 20061019
  Transmission Date: 20070319
  Serious: Yes (Other)
  Sender: FDA-Public Use
  Company Number: FR-ELI_LILLY_AND_COMPANY-FR200610003719

PATIENT
  Sex: Female

DRUGS (5)
  1. FORSTEO [Suspect]
     Indication: OSTEOPOROSIS
     Dosage: 20 UG, DAILY (1/D)
     Route: 048
     Dates: start: 20061002
  2. PARIET                                  /JPN/ [Concomitant]
     Indication: ABDOMINAL PAIN UPPER
  3. SELDIAR [Concomitant]
     Indication: PAIN
  4. ATACAND /SWE/ [Concomitant]
     Indication: HYPERTENSION
  5. CIRKAN [Concomitant]
     Indication: HAEMORRHOIDS

REACTIONS (3)
  - AMNESIA [None]
  - LOSS OF CONSCIOUSNESS [None]
  - MALAISE [None]
